FAERS Safety Report 4326324-4 (Version None)
Quarter: 2004Q1

REPORT INFORMATION
  Report Type: 
  Country: None (occurrence: None)
  Receive Date: 20040323
  Receipt Date: 20040308
  Transmission Date: 20041129
  Serious: No
  Sender: FDA-Public Use
  Company Number: 04H-163-0253090-00

PATIENT
  Sex: Male

DRUGS (1)
  1. MORPHINE SULFATE [Suspect]
     Indication: PAIN MANAGEMENT
     Dosage: 10 MG, INTRAMUSCULAR
     Route: 030

REACTIONS (4)
  - NAUSEA [None]
  - RESPIRATORY DEPRESSION [None]
  - SEDATION [None]
  - VOMITING [None]
